FAERS Safety Report 20344250 (Version 1)
Quarter: 2022Q1

REPORT INFORMATION
  Report Type: Spontaneous
  Country: FI (occurrence: FI)
  Receive Date: 20220118
  Receipt Date: 20220118
  Transmission Date: 20220423
  Serious: Yes (Hospitalization)
  Sender: FDA-Public Use
  Company Number: None

PATIENT
  Age: 15 Year
  Sex: Female

DRUGS (1)
  1. ISOTRETINOIN [Suspect]
     Active Substance: ISOTRETINOIN
     Indication: Acne
     Route: 048
     Dates: end: 202106

REACTIONS (6)
  - Immunodeficiency [Recovered/Resolved]
  - Rhinitis [Recovered/Resolved]
  - Infectious mononucleosis [Recovered/Resolved]
  - Dyspnoea [Recovered/Resolved]
  - Epstein-Barr viraemia [Recovered/Resolved]
  - Cough [Recovered/Resolved]

NARRATIVE: CASE EVENT DATE: 20210501
